FAERS Safety Report 5261713-5 (Version None)
Quarter: 2007Q1

REPORT INFORMATION
  Report Type: 
  Country: None (occurrence: None)
  Receive Date: 20070308
  Receipt Date: 20070224
  Transmission Date: 20070707
  Serious: Yes (Other)
  Sender: FDA-Public Use
  Company Number: 2007EN000073

PATIENT

DRUGS (1)
  1. OPANA ER [Suspect]
     Indication: DRUG ABUSER
     Dosage: X1; NAS

REACTIONS (5)
  - DEPRESSION [None]
  - DRUG ABUSER [None]
  - EUPHORIC MOOD [None]
  - FATIGUE [None]
  - INCORRECT ROUTE OF DRUG ADMINISTRATION [None]
